FAERS Safety Report 10889159 (Version 1)
Quarter: 2015Q1

REPORT INFORMATION
  Report Type: Spontaneous
  Country: US (occurrence: US)
  Receive Date: 20150305
  Receipt Date: 20150305
  Transmission Date: 20150721
  Serious: Yes (Hospitalization)
  Sender: FDA-Public Use
  Company Number: US-AMGEN-USASP2015003956

PATIENT
  Sex: Male

DRUGS (2)
  1. BLINCYTO [Suspect]
     Active Substance: BLINATUMOMAB
     Indication: PRODUCT USED FOR UNKNOWN INDICATION
     Dosage: 9 MUG, UNK
     Route: 065
     Dates: start: 201501
  2. BLINCYTO [Suspect]
     Active Substance: BLINATUMOMAB
     Dosage: 28 MUG, UNK
     Route: 065

REACTIONS (4)
  - Pyrexia [Unknown]
  - Hypotension [Unknown]
  - Cytokine release syndrome [Unknown]
  - Adverse event [Unknown]

NARRATIVE: CASE EVENT DATE: 201501
